FAERS Safety Report 5238779-1 (Version None)
Quarter: 2007Q1

REPORT INFORMATION
  Report Type: 
  Country: None (occurrence: None)
  Receive Date: 20070215
  Receipt Date: 20070205
  Transmission Date: 20070707
  Serious: Yes (Other)
  Sender: FDA-Public Use
  Company Number: US-PFIZER INC-2006152956

PATIENT
  Sex: Male
  Weight: 81.6 kg

DRUGS (2)
  1. CHANTIX [Suspect]
     Indication: SMOKING CESSATION THERAPY
     Dates: start: 20061117, end: 20061117
  2. ADVIL [Concomitant]

REACTIONS (5)
  - ANXIETY [None]
  - BLINDNESS [None]
  - DISORIENTATION [None]
  - FEAR [None]
  - FEELING ABNORMAL [None]
